FAERS Safety Report 13532749 (Version 2)
Quarter: 2017Q2

REPORT INFORMATION
  Report Type: Spontaneous
  Country: LT (occurrence: LT)
  Receive Date: 20170510
  Receipt Date: 20170606
  Transmission Date: 20170830
  Serious: Yes (Other)
  Sender: FDA-Public Use
  Company Number: LT-BAYER-2017-085992

PATIENT
  Sex: Female

DRUGS (1)
  1. MIRENA [Suspect]
     Active Substance: LEVONORGESTREL
     Dosage: 20 MCG/24HR, CONT
     Route: 015
     Dates: start: 201704, end: 20170502

REACTIONS (3)
  - Uterine haemorrhage [None]
  - Device dislocation [None]
  - Device defective [None]

NARRATIVE: CASE EVENT DATE: 20170502
